FAERS Safety Report 16235161 (Version 1)
Quarter: 2019Q2

REPORT INFORMATION
  Report Type: Spontaneous
  Country: HU (occurrence: HU)
  Receive Date: 20190424
  Receipt Date: 20190424
  Transmission Date: 20190711
  Serious: Yes (Death, Other)
  Sender: FDA-Public Use
  Company Number: HU-MYLANLABS-2019M1037365

PATIENT
  Age: 46 Year
  Sex: Female

DRUGS (1)
  1. ZOLEDRONIC ACID [Suspect]
     Active Substance: ZOLEDRONIC ACID
     Indication: BONE CANCER
     Dosage: UNK
     Route: 041
     Dates: start: 20160810

REACTIONS (2)
  - Death [Fatal]
  - EGFR gene mutation [Unknown]

NARRATIVE: CASE EVENT DATE: 201701
